FAERS Safety Report 9448314 (Version 1)
Quarter: 2013Q3

REPORT INFORMATION
  Report Type: Spontaneous
  Country: IT (occurrence: IT)
  Receive Date: 20130808
  Receipt Date: 20130808
  Transmission Date: 20140515
  Serious: Yes (Other)
  Sender: FDA-Public Use
  Company Number: IT-ASTELLAS-2013EU006772

PATIENT
  Age: 7 Year
  Sex: 0

DRUGS (1)
  1. TACROLIMUS SYSTEMIC [Suspect]
     Indication: NEPHROTIC SYNDROME
     Dosage: 0.1 MG/KG, UNKNOWN/D
     Route: 065
     Dates: end: 201302

REACTIONS (2)
  - Off label use [Unknown]
  - Food allergy [Unknown]
